FAERS Safety Report 6085639-2 (Version None)
Quarter: 2009Q1

REPORT INFORMATION
  Report Type: 
  Country: None (occurrence: None)
  Receive Date: 20090217
  Receipt Date: 20081211
  Transmission Date: 20090719
  Serious: Yes (Other)
  Sender: FDA-Public Use
  Company Number: MC200800580

PATIENT
  Sex: Male

DRUGS (2)
  1. ANGIOMAX [Suspect]
     Indication: PERCUTANEOUS CORONARY INTERVENTION
     Dosage: INTRAVENOUS
     Route: 042
     Dates: start: 20081210, end: 20081210
  2. HEPARIN [Suspect]
     Dates: start: 20081201, end: 20081201

REACTIONS (1)
  - THROMBOSIS [None]
